FAERS Safety Report 8107414-7 (Version None)
Quarter: 2011Q4

REPORT INFORMATION
  Report Type: 
  Country: None (occurrence: None)
  Receive Date: 20111227
  Receipt Date: 20110915
  Transmission Date: 20120403
  Serious: Yes (Other)
  Sender: FDA-Public Use
  Company Number: PHEH2011US04288

PATIENT
  Sex: Male

DRUGS (1)
  1. GILENYA [Suspect]

REACTIONS (1)
  - CD4 LYMPHOCYTES DECREASED [None]
